FAERS Safety Report 13521602 (Version 1)
Quarter: 2017Q2

REPORT INFORMATION
  Report Type: Spontaneous
  Country: US (occurrence: US)
  Receive Date: 20170505
  Receipt Date: 20170505
  Transmission Date: 20170830
  Serious: No
  Sender: FDA-Public Use
  Company Number: None

PATIENT
  Age: 57 Year
  Sex: Female

DRUGS (1)
  1. SPRYCEL [Suspect]
     Active Substance: DASATINIB

REACTIONS (6)
  - Memory impairment [None]
  - Dizziness [None]
  - Pain [None]
  - Depression [None]
  - Headache [None]
  - Crying [None]

NARRATIVE: CASE EVENT DATE: 20170405
